FAERS Safety Report 5819467-7 (Version None)
Quarter: 2008Q3

REPORT INFORMATION
  Report Type: 
  Country: None (occurrence: None)
  Receive Date: 20080723
  Receipt Date: 20080715
  Transmission Date: 20090109
  Serious: Yes (Hospitalization)
  Sender: FDA-Public Use
  Company Number: BR-JNJFOC-20080704586

PATIENT
  Age: 46 Year
  Sex: Female
  Weight: 100 kg

DRUGS (3)
  1. HALDOL [Suspect]
     Indication: SCHIZOPHRENIA
     Route: 048
  2. BIPERIDENE [Suspect]
     Indication: SCHIZOPHRENIA
     Route: 048
  3. NITRAZEPAM [Suspect]
     Indication: SCHIZOPHRENIA
     Route: 048

REACTIONS (5)
  - BRADYCARDIA [None]
  - DRUG TOXICITY [None]
  - HYPOTENSION [None]
  - HYPOTHERMIA [None]
  - SUICIDE ATTEMPT [None]
